FAERS Safety Report 4735592-6 (Version None)
Quarter: 2005Q3

REPORT INFORMATION
  Report Type: 
  Country: None (occurrence: None)
  Receive Date: 20050801
  Receipt Date: 20050801
  Transmission Date: 20060218
  Serious: Yes (Other)
  Sender: FDA-Public Use
  Company Number: None

PATIENT
  Sex: Female
  Weight: 118.8424 kg

DRUGS (2)
  1. ZOCOR [Suspect]
     Indication: HYPERCHOLESTEROLAEMIA
     Dosage: 20 MG PO
     Route: 048
     Dates: start: 20050601
  2. ZOCOR [Suspect]
     Indication: HYPERCHOLESTEROLAEMIA
     Dosage: 20 MG PO
     Route: 048
     Dates: start: 20050701

REACTIONS (2)
  - NAUSEA [None]
  - VOMITING [None]
